FAERS Safety Report 4954085-4 (Version None)
Quarter: 2006Q1

REPORT INFORMATION
  Report Type: 
  Country: None (occurrence: None)
  Receive Date: 20060327
  Receipt Date: 20020214
  Transmission Date: 20060701
  Serious: Yes (Hospitalization)
  Sender: FDA-Public Use
  Company Number: FR-GLAXOSMITHKLINE-B0260237A

PATIENT
  Age: 65 Year
  Sex: Male

DRUGS (1)
  1. CLAMOXYL [Suspect]
     Indication: BRAIN ABSCESS
     Route: 042
     Dates: start: 20011110, end: 20011120

REACTIONS (3)
  - BLOOD CREATININE INCREASED [None]
  - BLOOD UREA INCREASED [None]
  - RENAL FAILURE ACUTE [None]
